FAERS Safety Report 4427519-1 (Version None)
Quarter: 2004Q3

REPORT INFORMATION
  Report Type: 
  Country: None (occurrence: None)
  Receive Date: 20040812
  Receipt Date: 20040728
  Transmission Date: 20050211
  Serious: Yes (Hospitalization, Other)
  Sender: FDA-Public Use
  Company Number: USA-2004-0016201

PATIENT
  Age: 39 Year
  Sex: Female

DRUGS (1)
  1. OXYCODONE HCL [Suspect]

REACTIONS (6)
  - CHEST PAIN [None]
  - DRUG ABUSER [None]
  - ELECTROCARDIOGRAM T WAVE INVERSION [None]
  - HYPOAESTHESIA [None]
  - NAUSEA [None]
  - VOMITING [None]
